FAERS Safety Report 11422038 (Version 1)
Quarter: 2015Q3

REPORT INFORMATION
  Report Type: Spontaneous
  Country: US (occurrence: None)
  Receive Date: 20150825
  Receipt Date: 20150825
  Transmission Date: 20151125
  Serious: No
  Sender: FDA-Public Use
  Company Number: 2523595-2015-00225

PATIENT
  Sex: Female

DRUGS (2)
  1. UVADEX [Suspect]
     Active Substance: METHOXSALEN
  2. 8-MOP [Suspect]
     Active Substance: METHOXSALEN

REACTIONS (1)
  - Anaphylactic reaction [None]
